FAERS Safety Report 8661437 (Version 2)
Quarter: 2012Q4

REPORT INFORMATION
  Report Type: 
  Country: JP (occurrence: JP)
  Receive Date: 20120712
  Receipt Date: 20120914
  Transmission Date: 20130627
  Serious: Yes (Other)
  Sender: FDA-Public Use
  Company Number: JP-JNJFOC-20120702284

PATIENT
  Age: 78 None
  Sex: Female
  Weight: 72 kg

DRUGS (11)
  1. REMICADE [Suspect]
     Indication: RHEUMATOID ARTHRITIS
     Dosage: third dose
     Route: 042
     Dates: start: 20120405
  2. REMICADE [Suspect]
     Indication: RHEUMATOID ARTHRITIS
     Dosage: first dose
     Route: 042
     Dates: start: 20120223
  3. REMICADE [Suspect]
     Indication: RHEUMATOID ARTHRITIS
     Route: 042
     Dates: start: 20120308
  4. REMICADE [Suspect]
     Indication: ANKYLOSING SPONDYLITIS
     Dosage: third dose
     Route: 042
     Dates: start: 20120405
  5. REMICADE [Suspect]
     Indication: ANKYLOSING SPONDYLITIS
     Dosage: first dose
     Route: 042
     Dates: start: 20120223
  6. REMICADE [Suspect]
     Indication: ANKYLOSING SPONDYLITIS
     Route: 042
     Dates: start: 20120308
  7. AZULFIDINE EN [Concomitant]
     Indication: RHEUMATOID ARTHRITIS
     Dosage: 500 DF
     Route: 048
     Dates: start: 2003
  8. LETRAC [Concomitant]
     Indication: RHEUMATOID ARTHRITIS
     Route: 048
     Dates: start: 2003
  9. METHYCOBAL [Concomitant]
     Indication: SPINAL LIGAMENT OSSIFICATION
     Route: 048
     Dates: start: 2003
  10. PREDNISOLONE [Concomitant]
     Indication: RHEUMATOID ARTHRITIS
     Dosage: 2DF
     Route: 048
     Dates: start: 2003
  11. EDIROL [Concomitant]
     Indication: OSTEOPOROSIS PROPHYLAXIS
     Dosage: 0.75 DF
     Route: 048
     Dates: start: 201204

REACTIONS (7)
  - Sensory disturbance [Not Recovered/Not Resolved]
  - Gait disturbance [Recovering/Resolving]
  - Dysstasia [Recovering/Resolving]
  - Fall [Recovering/Resolving]
  - Muscular weakness [Recovering/Resolving]
  - Dizziness [Recovering/Resolving]
  - Demyelination [Unknown]
